FAERS Safety Report 7368780-3 (Version None)
Quarter: 2011Q1

REPORT INFORMATION
  Report Type: 
  Country: None (occurrence: None)
  Receive Date: 20110304
  Receipt Date: 20101029
  Transmission Date: 20110831
  Serious: Yes (Death, Life-Threatening, Hospitalization)
  Sender: FDA-Public Use
  Company Number: CLOF-10335

PATIENT
  Age: 68 Year
  Sex: Male
  Weight: 81.9 kg

DRUGS (23)
  1. ZESTRIL [Concomitant]
  2. TETRACAINE (TETRACAINE HYDROCHLORIDE) [Concomitant]
  3. DIFLUCAN [Concomitant]
  4. TOBRAMYCIN [Concomitant]
  5. PIPERACILLIN SODIUM W (PIPERACILLIN SODIUM, TAZOBACTAM) [Concomitant]
  6. NOREPINEPHRINE BITARTRATE [Concomitant]
  7. HYDROCORTISONE [Concomitant]
  8. LORAZEPAM [Concomitant]
  9. ALLOPURINOL [Concomitant]
  10. FUROSEMIDE (FUROSEMIDE SODIUM) [Concomitant]
  11. AMPICILLIN (AMPICILLIN TRIHYDRATE) [Concomitant]
  12. DOBUTAMINE HCL [Concomitant]
  13. CLOFARABINE [Suspect]
     Indication: ACUTE MYELOID LEUKAEMIA
     Dosage: 40 MG/M2, QDX5, INTRAVENOUS
     Route: 042
     Dates: start: 20060919, end: 20060923
  14. EFFEXOR [Concomitant]
  15. LEVOFLOXACIN (LEVAQUIN) [Concomitant]
  16. ASPIRIN (SALICYLAMIDE) [Concomitant]
  17. VANCOMYCIN [Concomitant]
  18. MORPHINE [Concomitant]
  19. LIPITOR [Concomitant]
  20. CEFTRIAXONER (CEFTRIAXONE SODIUM) [Concomitant]
  21. CYTARABINE [Suspect]
     Indication: ACUTE MYELOID LEUKAEMIA
     Dosage: 1G/M2, QDX5, INTRAVENOUS
     Route: 042
     Dates: start: 20060919, end: 20060923
  22. NEUPOGEN [Concomitant]
  23. ACETAMINOPHEN [Concomitant]

REACTIONS (17)
  - FEBRILE NEUTROPENIA [None]
  - PULMONARY HAEMORRHAGE [None]
  - HYPOXIC-ISCHAEMIC ENCEPHALOPATHY [None]
  - HAEMOPTYSIS [None]
  - CARDIOGENIC SHOCK [None]
  - PANCYTOPENIA [None]
  - CARDIAC FAILURE CONGESTIVE [None]
  - BRAIN INJURY [None]
  - ACUTE MYOCARDIAL INFARCTION [None]
  - HYPOTENSION [None]
  - TACHYCARDIA [None]
  - ACUTE RESPIRATORY DISTRESS SYNDROME [None]
  - THROMBOSIS [None]
  - CONJUNCTIVAL HAEMORRHAGE [None]
  - CORYNEBACTERIUM SEPSIS [None]
  - CORYNEBACTERIUM TEST POSITIVE [None]
  - THROMBOCYTOPENIA [None]
